FAERS Safety Report 23591348 (Version 1)
Quarter: 2024Q1

REPORT INFORMATION
  Report Type: Spontaneous
  Country: BG (occurrence: BG)
  Receive Date: 20240304
  Receipt Date: 20240304
  Transmission Date: 20240410
  Serious: Yes (Hospitalization)
  Sender: FDA-Public Use
  Company Number: BG-ROCHE-2272734

PATIENT
  Age: 60 Year
  Sex: Female
  Weight: 72 kg

DRUGS (31)
  1. HERCEPTIN [Suspect]
     Active Substance: TRASTUZUMAB
     Dosage: 6 MG/KG, TIW
     Route: 042
     Dates: start: 20181114, end: 20200205
  2. HERCEPTIN [Suspect]
     Active Substance: TRASTUZUMAB
     Indication: HER2 positive breast cancer
     Dosage: 8 MG, QD
     Route: 042
     Dates: start: 20181024, end: 20181024
  3. PERJETA [Suspect]
     Active Substance: PERTUZUMAB
     Dosage: 420 MG, TIW
     Route: 042
     Dates: start: 20181114, end: 20200205
  4. PERJETA [Suspect]
     Active Substance: PERTUZUMAB
     Indication: HER2 positive breast cancer
     Dosage: 840 MG, QD MOST RECENT DOSE PRIOR TO THE EVENT ON 14 NOV 2018
     Route: 042
     Dates: start: 20181024, end: 20181114
  5. TAXOTERE [Suspect]
     Active Substance: DOCETAXEL
     Indication: HER2 positive breast cancer
     Dosage: 75 MG/M2, Q3W (ON 19 JAN 2019, RECEIVED MOST RECENT DOSE OF DOCETAXEL)
     Route: 042
     Dates: start: 20181024
  6. TAXOTERE [Suspect]
     Active Substance: DOCETAXEL
     Indication: Alanine aminotransferase increased
  7. TAXOTERE [Suspect]
     Active Substance: DOCETAXEL
     Indication: Aspartate aminotransferase increased
  8. ZOLEDRONIC ACID [Suspect]
     Active Substance: ZOLEDRONIC ACID
     Indication: HER2 positive breast cancer
     Dosage: 4 MG (SOLUTION)
     Route: 042
     Dates: start: 20181002, end: 20181228
  9. ZOLEDRONIC ACID [Suspect]
     Active Substance: ZOLEDRONIC ACID
     Dosage: 4 MG (SOLUTION)
     Route: 042
     Dates: start: 20181002, end: 20181228
  10. ZOLEDRONIC ACID [Suspect]
     Active Substance: ZOLEDRONIC ACID
     Dosage: 4 MG (SOLUTION)
     Route: 042
     Dates: start: 20190528, end: 20200207
  11. Ademetionin [Concomitant]
     Indication: Product used for unknown indication
     Dosage: 24 MG
     Route: 065
     Dates: start: 20200110, end: 20200120
  12. AMLODIPINE [Concomitant]
     Active Substance: AMLODIPINE BESYLATE
     Indication: Product used for unknown indication
     Dosage: 20 MG
     Route: 065
     Dates: start: 20181114, end: 20181114
  13. AMLODIPINE [Concomitant]
     Active Substance: AMLODIPINE BESYLATE
     Dosage: 20 MG
     Route: 065
     Dates: start: 20181024, end: 20181024
  14. AMLODIPINE [Concomitant]
     Active Substance: AMLODIPINE BESYLATE
     Dosage: 20 MG
     Route: 065
     Dates: start: 20181206, end: 20181206
  15. BETAHISTINE [Concomitant]
     Active Substance: BETAHISTINE
     Indication: Product used for unknown indication
     Dosage: 20 MG
     Route: 065
     Dates: start: 20181206, end: 20181206
  16. CITICOLINE [Concomitant]
     Active Substance: CITICOLINE
     Dosage: 250 MG, QD
     Route: 065
     Dates: start: 20200110, end: 20200120
  17. CITICOLINE [Concomitant]
     Active Substance: CITICOLINE
     Indication: Product used for unknown indication
     Dosage: ONGOING = CHECKED
     Route: 065
     Dates: start: 202006
  18. CITICOLINE [Concomitant]
     Active Substance: CITICOLINE
     Dosage: 500 MG, QD
     Route: 065
     Dates: start: 20200110, end: 20200120
  19. DEXAMETHASONE [Concomitant]
     Active Substance: DEXAMETHASONE
     Indication: Product used for unknown indication
     Dosage: 16 MG
     Route: 065
     Dates: start: 20181114, end: 20181114
  20. DEXAMETHASONE [Concomitant]
     Active Substance: DEXAMETHASONE
     Dosage: 16 MG
     Route: 065
     Dates: start: 20181024, end: 20181024
  21. DEXAMETHASONE [Concomitant]
     Active Substance: DEXAMETHASONE
     Dosage: 16 MG
     Route: 065
     Dates: start: 20181206, end: 20181206
  22. DEXAMETHASONE [Concomitant]
     Active Substance: DEXAMETHASONE
     Dosage: 8 MG
     Route: 065
     Dates: start: 20181023, end: 20181023
  23. DEXAMETHASONE [Concomitant]
     Active Substance: DEXAMETHASONE
     Dosage: 8 MG
     Route: 065
     Dates: start: 20181113, end: 20181113
  24. DEXAMETHASONE [Concomitant]
     Active Substance: DEXAMETHASONE
     Dosage: 8 MG
     Route: 065
     Dates: start: 20181205, end: 20181205
  25. FAMOTIDINE [Concomitant]
     Active Substance: FAMOTIDINE
     Indication: Product used for unknown indication
     Dosage: 20 MG
     Route: 065
     Dates: start: 20181114, end: 20181114
  26. LEVOTHYROXINE [Concomitant]
     Active Substance: LEVOTHYROXINE\LEVOTHYROXINE SODIUM
     Indication: Product used for unknown indication
     Dosage: ONGOING = CHECKED
     Route: 065
     Dates: end: 202006
  27. METOPROLOL [Concomitant]
     Active Substance: METOPROLOL
     Indication: Product used for unknown indication
     Dosage: 50 MG
     Route: 065
     Dates: end: 202006
  28. ONDANSETRON [Concomitant]
     Active Substance: ONDANSETRON
     Dosage: 20 MG, QD
     Route: 065
     Dates: start: 20181206, end: 20181206
  29. ONDANSETRON [Concomitant]
     Active Substance: ONDANSETRON
     Indication: Product used for unknown indication
     Dosage: 8 MG, QD
     Route: 065
     Dates: start: 20181114, end: 20181114
  30. ONDANSETRON [Concomitant]
     Active Substance: ONDANSETRON
     Dosage: 8 MG, QD
     Route: 065
     Dates: start: 20181024, end: 20181024
  31. RAMIPRIL [Concomitant]
     Active Substance: RAMIPRIL
     Indication: Product used for unknown indication
     Dosage: 10 MG, QD
     Route: 065

REACTIONS (1)
  - Apical granuloma [Recovered/Resolved]

NARRATIVE: CASE EVENT DATE: 20190208
